FAERS Safety Report 18229531 (Version 5)
Quarter: 2021Q2

REPORT INFORMATION
  Report Type: Spontaneous
  Country: US (occurrence: US)
  Receive Date: 20200903
  Receipt Date: 20210630
  Transmission Date: 20210717
  Serious: Yes (Other)
  Sender: FDA-Public Use
  Company Number: US-PFIZER INC-2020153992

PATIENT
  Age: 80 Year
  Sex: Female

DRUGS (2)
  1. LYRICA [Concomitant]
     Active Substance: PREGABALIN
     Indication: SPINAL OPERATION
     Dosage: 3?4 TIMES DAILY NEVER EXCEEDING 600MG TOTAL DAILY
  2. PREMARIN [Suspect]
     Active Substance: ESTROGENS, CONJUGATED
     Indication: URINARY TRACT INFECTION
     Dosage: UNK (QUANTITY FOR 90 DAYS: 18 GM)

REACTIONS (4)
  - Urinary retention [Unknown]
  - Pain [Unknown]
  - Arthritis [Unknown]
  - Off label use [Unknown]
